FAERS Safety Report 6448909-1 (Version None)
Quarter: 2009Q4

REPORT INFORMATION
  Report Type: 
  Country: None (occurrence: None)
  Receive Date: 20091119
  Receipt Date: 20091119
  Transmission Date: 20100525
  Serious: Yes (Life-Threatening, Hospitalization)
  Sender: FDA-Public Use
  Company Number: None

PATIENT
  Sex: Female

DRUGS (1)
  1. TYLENOL (CAPLET) [Suspect]
     Dosage: FIRST USE OTHER BY MOUTH
     Route: 048

REACTIONS (1)
  - MENINGITIS NEONATAL [None]
